FAERS Safety Report 6962627-2 (Version None)
Quarter: 2010Q3

REPORT INFORMATION
  Report Type: 
  Country: None (occurrence: None)
  Receive Date: 20100902
  Receipt Date: 20100824
  Transmission Date: 20110219
  Serious: Yes (Other)
  Sender: FDA-Public Use
  Company Number: JP-PFIZER INC-2010106172

PATIENT

DRUGS (3)
  1. DIFLUCAN [Suspect]
     Dosage: 100 MG, 1X/DAY
     Route: 048
     Dates: start: 20100823
  2. LEVOFLOXACIN [Concomitant]
     Dosage: UNK
     Route: 048
  3. CALONAL [Concomitant]
     Dosage: UNK
     Route: 048

REACTIONS (1)
  - CHROMATURIA [None]
